FAERS Safety Report 7742632-9 (Version None)
Quarter: 2011Q3

REPORT INFORMATION
  Report Type: 
  Country: None (occurrence: None)
  Receive Date: 20110908
  Receipt Date: 20110908
  Transmission Date: 20111222
  Serious: Yes (Hospitalization)
  Sender: FDA-Public Use
  Company Number: None

PATIENT
  Age: 86 Year
  Sex: Female
  Weight: 69.6 kg

DRUGS (8)
  1. ENOXAPARIN [Concomitant]
  2. ALBUTEROL [Concomitant]
  3. ACETAMINOPHEN [Concomitant]
  4. DRONABINOL [Concomitant]
  5. BENDAMUSTINE [Suspect]
     Indication: B-CELL LYMPHOMA
     Dosage: 120MG/M2, DAY 1 + 2, Q21
     Dates: start: 20110708, end: 20110709
  6. RITUXIMAB [Suspect]
     Dosage: 375MG/M2, DAY 1 Q 21 DAY
     Dates: start: 20110708, end: 20110709
  7. DOCUSATE SODIUM [Concomitant]
  8. FERROUS SULFATE TAB [Concomitant]

REACTIONS (1)
  - PYREXIA [None]
